FAERS Safety Report 5932172-1 (Version None)
Quarter: 2008Q4

REPORT INFORMATION
  Report Type: 
  Country: None (occurrence: None)
  Receive Date: 20081023
  Receipt Date: 20080529
  Transmission Date: 20090506
  Serious: Yes (Hospitalization)
  Sender: FDA-Public Use
  Company Number: CL000282008

PATIENT
  Sex: Male

DRUGS (1)
  1. CIPROFLOXACIN [Suspect]
     Dosage: 1000MG ORAL
     Route: 048

REACTIONS (4)
  - ALOPECIA [None]
  - BONE MARROW FAILURE [None]
  - PANCYTOPENIA [None]
  - STOMATITIS [None]
